FAERS Safety Report 11536757 (Version 1)
Quarter: 2015Q3

REPORT INFORMATION
  Report Type: Spontaneous
  Country: US (occurrence: US)
  Receive Date: 20150922
  Receipt Date: 20150922
  Transmission Date: 20151125
  Serious: No
  Sender: FDA-Public Use
  Company Number: US-009507513-1509USA007608

PATIENT
  Age: 90 Year
  Sex: Male

DRUGS (1)
  1. BELSOMRA [Suspect]
     Active Substance: SUVOREXANT
     Indication: INSOMNIA
     Dosage: 10 MG, THEN 15 MG, AND THEN 20 MG OVER A TOTAL OF  6 WEEKS
     Route: 048

REACTIONS (1)
  - Drug ineffective [Unknown]
